FAERS Safety Report 5076925-3 (Version None)
Quarter: 2006Q3

REPORT INFORMATION
  Report Type: 
  Country: None (occurrence: None)
  Receive Date: 20060810
  Receipt Date: 20060803
  Transmission Date: 20061208
  Serious: Yes (Other)
  Sender: FDA-Public Use
  Company Number: CA-JNJFOC-20060402673

PATIENT
  Sex: Female
  Weight: 86.18 kg

DRUGS (14)
  1. TOPAMAX [Suspect]
     Indication: SCIATICA
     Dosage: START DATE OCT/NOV 2004
  2. CELEBREX [Concomitant]
     Indication: ARTHRITIS
  3. ZOCOR [Concomitant]
     Indication: BLOOD CHOLESTEROL
  4. EFFEXOR [Concomitant]
     Indication: DEPRESSION
  5. SYNTHROID [Concomitant]
     Indication: THYROID DISORDER
  6. PARIET [Concomitant]
     Indication: GASTROOESOPHAGEAL REFLUX DISEASE
  7. CLONAZEPAM [Concomitant]
     Indication: TREMOR
  8. CLONAZEPAM [Concomitant]
     Indication: ANXIETY
  9. CLONAZEPAM [Concomitant]
     Indication: SLEEP DISORDER
     Dosage: EVENING
  10. ASPIRIN [Concomitant]
     Indication: TRANSIENT ISCHAEMIC ATTACK
  11. CALCIUM WITH VITAMIN D [Concomitant]
     Indication: OSTEOPENIA
  12. SENOKOT [Concomitant]
  13. DULCOLAX [Concomitant]
  14. ATIVAN [Concomitant]

REACTIONS (3)
  - LOSS OF CONSCIOUSNESS [None]
  - PETIT MAL EPILEPSY [None]
  - ROAD TRAFFIC ACCIDENT [None]
